FAERS Safety Report 7838918 (Version 1)
Quarter: 2020Q3

REPORT INFORMATION
  Report Type: Report from Study
  Country: US (occurrence: US)
  Receive Date: 20110303
  Receipt Date: 20110303
  Transmission Date: 20201104
  Serious: Yes (Hospitalization)
  Sender: FDA-Public Use
  Company Number: US-JNJFOC-20061206836

PATIENT
  Age: 62 Year
  Sex: Male
  Weight: 151 kg

DRUGS (16)
  1. CNTO 1275 [Suspect]
     Active Substance: USTEKINUMAB
     Indication: PSORIASIS
     Dosage: WEEK 28
     Route: 058
  2. ALEVE [Concomitant]
     Active Substance: NAPROXEN SODIUM
     Indication: PSORIATIC ARTHROPATHY
     Route: 048
  3. CNTO 1275 [Suspect]
     Active Substance: USTEKINUMAB
     Dosage: WEEK 4
     Route: 058
  4. GABAPENTIN. [Concomitant]
     Active Substance: GABAPENTIN
     Route: 048
  5. VITAMIN B6 [Concomitant]
     Active Substance: PYRIDOXINE HYDROCHLORIDE
     Route: 048
  6. CNTO 1275 [Suspect]
     Active Substance: USTEKINUMAB
     Dosage: WEEK 16
     Route: 058
  7. METFORMIN [Concomitant]
     Active Substance: METFORMIN HYDROCHLORIDE
     Route: 048
  8. MIRAPEX [Concomitant]
     Active Substance: PRAMIPEXOLE DIHYDROCHLORIDE
     Route: 048
  9. ADVICOR [Concomitant]
     Active Substance: LOVASTATIN\NIACIN
     Route: 048
  10. MORPHINE [Concomitant]
     Active Substance: MORPHINE
     Route: 042
  11. CNTO 1275 [Suspect]
     Active Substance: USTEKINUMAB
     Dosage: WEEK 0
     Route: 058
  12. DIOVAN [Concomitant]
     Active Substance: VALSARTAN
     Route: 048
  13. ZOCOR [Concomitant]
     Active Substance: SIMVASTATIN
     Route: 048
  14. CITALOPRAM [Concomitant]
     Active Substance: CITALOPRAM HYDROBROMIDE
     Route: 048
  15. TRAMADOL. [Concomitant]
     Active Substance: TRAMADOL
     Indication: PSORIASIS
     Route: 048
  16. ISONIAZID. [Concomitant]
     Active Substance: ISONIAZID
     Route: 048

REACTIONS (2)
  - Osteomyelitis [Recovered/Resolved]
  - Cellulitis [Recovered/Resolved]

NARRATIVE: CASE EVENT DATE: 20061221
